FAERS Safety Report 7624708 (Version 2)
Quarter: 2013Q3

REPORT INFORMATION
  Report Type: Spontaneous
  Country: US (occurrence: US)
  Receive Date: 20101012
  Receipt Date: 20130826
  Transmission Date: 20140515
  Serious: Yes (Hospitalization)
  Sender: FDA-Public Use
  Company Number: US-RANBAXY-2010US-38564

PATIENT
  Age: 19 Year
  Sex: Male

DRUGS (2)
  1. IBUPROFEN [Suspect]
     Indication: PRODUCT USED FOR UNKNOWN INDICATION
     Dosage: 450 TABLETS OF 200 MG IBUPROFEN (90,000 MG TOTAL; 1,200 MG/KG)
     Route: 048
  2. ALCOHOL [Suspect]
     Indication: PRODUCT USED FOR UNKNOWN INDICATION
     Dosage: 1180 ML
     Route: 048

REACTIONS (5)
  - Intentional overdose [Recovering/Resolving]
  - Polyuria [Recovering/Resolving]
  - Metabolic acidosis [Recovering/Resolving]
  - Coma [Recovering/Resolving]
  - Renal tubular necrosis [Unknown]
